FAERS Safety Report 11211321 (Version 1)
Quarter: 2015Q2

REPORT INFORMATION
  Report Type: Spontaneous
  Country: US (occurrence: US)
  Receive Date: 20150623
  Receipt Date: 20150623
  Transmission Date: 20150821
  Serious: Yes (Hospitalization, Other)
  Sender: FDA-Public Use
  Company Number: US-PAR PHARMACEUTICAL, INC-2015SCPR014063

PATIENT

DRUGS (1)
  1. OLANZAPINE. [Suspect]
     Active Substance: OLANZAPINE
     Indication: PRODUCT USED FOR UNKNOWN INDICATION
     Dosage: 20 DF, UNKNOWN
     Route: 048

REACTIONS (6)
  - Suicide attempt [Unknown]
  - Neuroleptic malignant syndrome [Unknown]
  - Overdose [Unknown]
  - Miosis [Unknown]
  - Muscle contractions involuntary [Unknown]
  - Compartment syndrome [Unknown]
